FAERS Safety Report 18574316 (Version 3)
Quarter: 2021Q2

REPORT INFORMATION
  Report Type: Report from Study
  Country: None (occurrence: US)
  Receive Date: 20201203
  Receipt Date: 20210603
  Transmission Date: 20210717
  Serious: Yes (Hospitalization, Other)
  Sender: FDA-Public Use
  Company Number: US-ABBVIE-20K-163-3671980-00

PATIENT
  Sex: Female

DRUGS (1)
  1. HUMIRA [Suspect]
     Active Substance: ADALIMUMAB
     Indication: RHEUMATOID ARTHRITIS
     Dosage: CITRATE FREE
     Route: 058

REACTIONS (7)
  - Nephrolithiasis [Recovered/Resolved]
  - Cholelithiasis [Unknown]
  - Pain in extremity [Recovering/Resolving]
  - Renal disorder [Unknown]
  - Muscle spasms [Recovered/Resolved]
  - Ovarian cyst [Unknown]
  - Arthralgia [Recovering/Resolving]
